FAERS Safety Report 4309450-5 (Version None)
Quarter: 2004Q1

REPORT INFORMATION
  Report Type: 
  Country: None (occurrence: None)
  Receive Date: 20040301
  Receipt Date: 20040218
  Transmission Date: 20041129
  Serious: Yes (Hospitalization, Other)
  Sender: FDA-Public Use
  Company Number: 2004010851

PATIENT
  Age: 40 Year
  Sex: Female

DRUGS (1)
  1. ZITHROMAX [Suspect]
     Indication: ILL-DEFINED DISORDER
     Dosage: 500 MG DAILY, ORAL
     Route: 048
     Dates: start: 20040216

REACTIONS (2)
  - HAEMATURIA [None]
  - HEPATITIS A [None]
